FAERS Safety Report 6755788-1 (Version None)
Quarter: 2010Q2

REPORT INFORMATION
  Report Type: 
  Country: None (occurrence: None)
  Receive Date: 20100604
  Receipt Date: 20100526
  Transmission Date: 20101027
  Serious: Yes (Hospitalization)
  Sender: FDA-Public Use
  Company Number: IT-ELI_LILLY_AND_COMPANY-IT201005007527

PATIENT
  Sex: Male

DRUGS (7)
  1. ALIMTA [Suspect]
     Indication: NON-SMALL CELL LUNG CANCER STAGE II
     Dosage: 800 MG, UNKNOWN
     Route: 042
     Dates: start: 20100329
  2. ALIMTA [Suspect]
     Dosage: 400 MG, UNKNOWN
     Route: 065
  3. DOBETIN [Concomitant]
     Dosage: UNK, UNKNOWN
     Route: 065
  4. FOLIC ACID [Concomitant]
     Dosage: UNK, UNKNOWN
     Route: 065
  5. NIMESULIDE [Concomitant]
     Dosage: UNK, UNKNOWN
     Route: 065
  6. OXYCONTIN [Concomitant]
     Dosage: 20 MG, 2/D
     Route: 065
  7. DEXAMETHASONE [Concomitant]
     Dosage: UNK, UNKNOWN
     Route: 065

REACTIONS (7)
  - ASTHENIA [None]
  - DECREASED APPETITE [None]
  - DIARRHOEA [None]
  - HYPONATRAEMIA [None]
  - PANCYTOPENIA [None]
  - URTICARIA [None]
  - VOMITING [None]
